FAERS Safety Report 22005265 (Version 1)
Quarter: 2023Q1

REPORT INFORMATION
  Report Type: Spontaneous
  Country: GB (occurrence: GB)
  Receive Date: 20230217
  Receipt Date: 20230217
  Transmission Date: 20230418
  Serious: Yes (Death)
  Sender: FDA-Public Use
  Company Number: None

PATIENT
  Age: 42 Year
  Sex: Female

DRUGS (37)
  1. SIMVASTATIN [Suspect]
     Active Substance: SIMVASTATIN
     Indication: Product used for unknown indication
     Dosage: 20 MILLIGRAM DAILY; AT BEDTIME
     Route: 048
     Dates: start: 20221214, end: 20221221
  2. ACETYLCYSTEINE [Concomitant]
     Active Substance: ACETYLCYSTEINE
     Indication: Product used for unknown indication
     Dosage: 1 GTT DAILY; LEFT EYE
     Dates: start: 20221221
  3. CALCIUM CARBONATE\CHOLECALCIFEROL [Concomitant]
     Active Substance: CALCIUM CARBONATE\CHOLECALCIFEROL
     Indication: Product used for unknown indication
     Dosage: 3 GRAM DAILY;
     Route: 048
     Dates: start: 20221213
  4. AQUEOUS CREAM [Concomitant]
     Indication: Product used for unknown indication
     Dosage: 3 DOSAGE FORMS DAILY;
     Route: 061
     Dates: start: 20221214
  5. BECLOMETHASONE DIPROPIONATE [Concomitant]
     Active Substance: BECLOMETHASONE DIPROPIONATE
     Indication: Product used for unknown indication
     Dosage: 400 MICROGRAM DAILY;
     Route: 055
     Dates: start: 20221220
  6. ALFENTANIL [Concomitant]
     Active Substance: ALFENTANIL
     Indication: Product used for unknown indication
     Route: 058
     Dates: start: 20221219
  7. DEXAMETHASONE [Concomitant]
     Active Substance: DEXAMETHASONE
     Indication: Product used for unknown indication
     Dosage: 4 GTT DAILY; LEFT EYE
     Dates: start: 20221219
  8. DOBUTAMINE [Concomitant]
     Active Substance: DOBUTAMINE HYDROCHLORIDE
     Indication: Product used for unknown indication
     Dosage: CENTRA
     Route: 042
     Dates: start: 20221220
  9. DEXTROSE [Concomitant]
     Active Substance: DEXTROSE
     Indication: Product used for unknown indication
     Route: 042
     Dates: start: 20221219
  10. KABIVEN [Concomitant]
     Active Substance: AMINO ACIDS\ANHYDROUS DEXTROSE\CALCIUM CHLORIDE\MAGNESIUM SULFATE HEPTAHYDRATE\POTASSIUM CHLORIDE\SO
     Indication: Product used for unknown indication
     Dosage: 1 BAG(S)
     Route: 042
     Dates: start: 20221219, end: 20221220
  11. FENTANYL [Concomitant]
     Active Substance: FENTANYL
     Indication: Product used for unknown indication
     Dosage: 4MICROGRAM/ML. 500ML INFUSION.,
     Route: 008
     Dates: start: 20221219
  12. LEVOBUPIVACAINE [Concomitant]
     Active Substance: LEVOBUPIVACAINE
     Indication: Product used for unknown indication
     Route: 008
     Dates: start: 20221219
  13. NOREPINEPHRINE [Concomitant]
     Active Substance: NOREPINEPHRINE
     Indication: Product used for unknown indication
     Dosage: CENTRAL
     Route: 042
     Dates: start: 20221220
  14. NOVORAPID [Concomitant]
     Active Substance: INSULIN ASPART
     Indication: Product used for unknown indication
     Dosage: REFER TO STRUCTURED NOTES FOR REGIMEN UNSCHEDULED
     Route: 058
     Dates: start: 20221219, end: 20221220
  15. HUMAN RED BLOOD CELL [Concomitant]
     Active Substance: HUMAN RED BLOOD CELL
     Indication: Product used for unknown indication
     Dosage: ALIQUOT(S) OR UNIT(S) TO PRESCRIBED VOLU UNSCHEDULED. 4 DOSES.
     Route: 042
     Dates: start: 20221219
  16. ISONIAZID\RIFAMPIN [Concomitant]
     Active Substance: ISONIAZID\RIFAMPIN
     Indication: Tuberculosis
     Dosage: 4 DOSAGE FORMS DAILY; 150 MG-100 MG
     Route: 048
     Dates: start: 20221221
  17. TIMOLOL [Concomitant]
     Active Substance: TIMOLOL
     Indication: Product used for unknown indication
     Dosage: 1 GTT DAILY; LEFT EYE
     Dates: start: 20221220
  18. TRIMOVATE [Concomitant]
     Active Substance: CLOBETASONE BUTYRATE\NYSTATIN\OXYTETRACYCLINE CALCIUM
     Indication: Product used for unknown indication
     Dosage: 2 DOSAGE FORMS DAILY;
     Route: 061
     Dates: start: 20221214
  19. WARFARIN [Concomitant]
     Active Substance: WARFARIN
     Indication: Product used for unknown indication
     Dosage: 1 DOSAGE FORMS DAILY; AT MIDDAY
     Route: 048
     Dates: start: 20221220
  20. AMOXICILLIN [Concomitant]
     Active Substance: AMOXICILLIN
     Indication: Pneumonia
     Dosage: 3 GRAM DAILY;
     Route: 048
     Dates: start: 20221220
  21. APIXABAN [Concomitant]
     Active Substance: APIXABAN
     Indication: Atrial fibrillation
     Dosage: 10 MILLIGRAM DAILY;
     Route: 048
     Dates: start: 20221220
  22. ASPIRIN [Concomitant]
     Active Substance: ASPIRIN
     Indication: Product used for unknown indication
     Dosage: 75 MILLIGRAM DAILY; MORNING
     Route: 048
     Dates: start: 20221215
  23. CLONAZEPAM [Concomitant]
     Active Substance: CLONAZEPAM
     Indication: Product used for unknown indication
     Dosage: 500 MICROGRAM DAILY; AT BEDTIME
     Route: 048
     Dates: start: 20221220
  24. DIAZEPAM [Concomitant]
     Active Substance: DIAZEPAM
     Indication: Product used for unknown indication
     Dosage: 5 MILLIGRAM DAILY; AT BEDTIME
     Route: 048
     Dates: start: 20221219
  25. ENOXAPARIN [Concomitant]
     Active Substance: ENOXAPARIN
     Indication: Embolism venous
     Dosage: 40 MILLIGRAM DAILY; EVERY EVENING AT 6PM
     Route: 058
     Dates: start: 20221214
  26. IBUPROFEN [Concomitant]
     Active Substance: IBUPROFEN
     Indication: Product used for unknown indication
     Dosage: 1200 MILLIGRAM DAILY;
     Route: 048
     Dates: start: 20221219
  27. IMMUNOGLOBULIN [Concomitant]
     Indication: Immune thrombocytopenia
     Dosage: 20 GRAM DAILY; FOR 3 DAY(S)
     Route: 042
     Dates: start: 20221220, end: 20221223
  28. METFORMIN [Concomitant]
     Active Substance: METFORMIN HYDROCHLORIDE
     Indication: Product used for unknown indication
     Dosage: 1000 MILLIGRAM DAILY; AT 8AM AND 6PM
     Route: 048
     Dates: start: 20221219
  29. MORPHINE SULFATE [Concomitant]
     Active Substance: MORPHINE SULFATE
     Indication: Product used for unknown indication
     Dosage: (ADDITIVE FOR INFUSION) 1-2MG PRN FOR 5 DOSE(S); 10 MG TWICE A DAY ORAL
     Route: 042
     Dates: start: 20221219
  30. ONDANSETRON [Concomitant]
     Active Substance: ONDANSETRON
     Indication: Product used for unknown indication
     Dosage: 12 MILLIGRAM DAILY; ORAL/ INTRAVENOUS/ INTRAMUSCULAR
     Route: 048
     Dates: start: 20221221
  31. ONDANSETRON [Concomitant]
     Active Substance: ONDANSETRON
     Route: 042
  32. ONDANSETRON [Concomitant]
     Active Substance: ONDANSETRON
     Route: 030
  33. OXYGEN [Concomitant]
     Active Substance: OXYGEN
     Indication: Product used for unknown indication
     Dosage: 2 L/MIN AS REQUIRED INHALED
     Route: 055
     Dates: start: 20221219
  34. PREDNISOLONE [Concomitant]
     Active Substance: PREDNISOLONE
     Indication: Product used for unknown indication
     Dosage: 15 MILLIGRAM DAILY; EVERY MORNING
     Route: 048
     Dates: start: 20221221, end: 20221222
  35. ALBUTEROL [Concomitant]
     Active Substance: ALBUTEROL
     Indication: Product used for unknown indication
     Dosage: 200 MICROGRAM DAILY;
     Route: 042
     Dates: start: 20221220
  36. VALPROATE SODIUM [Concomitant]
     Active Substance: VALPROATE SODIUM
     Indication: Product used for unknown indication
     Dosage: 500 MILLIGRAM DAILY;
     Route: 048
     Dates: start: 20221220
  37. SODIUM CHLORIDE [Concomitant]
     Active Substance: SODIUM CHLORIDE
     Indication: Product used for unknown indication
     Dosage: DILUENT FOR PCA

REACTIONS (2)
  - Death [Fatal]
  - Myalgia [Not Recovered/Not Resolved]
